FAERS Safety Report 20310785 (Version 1)
Quarter: 2022Q1

REPORT INFORMATION
  Report Type: Spontaneous
  Country: US (occurrence: US)
  Receive Date: 20220107
  Receipt Date: 20220107
  Transmission Date: 20220423
  Serious: Yes (Other)
  Sender: FDA-Public Use
  Company Number: US-PFIZER INC-202101864037

PATIENT
  Age: 80 Year
  Sex: Female

DRUGS (1)
  1. VYNDAMAX [Suspect]
     Active Substance: TAFAMIDIS
     Indication: Amyloidosis
     Dosage: 61 MG

REACTIONS (38)
  - Pulmonary hypertension [Unknown]
  - Hepatocellular carcinoma [Unknown]
  - Diabetes mellitus [Unknown]
  - Type 2 diabetes mellitus [Unknown]
  - Hypothyroidism [Unknown]
  - Chronic kidney disease [Unknown]
  - Deafness neurosensory [Unknown]
  - Lactic acidosis [Unknown]
  - Cardiac failure [Unknown]
  - Neuropathy peripheral [Unknown]
  - Hypokalaemia [Unknown]
  - Thrombocytopenia [Unknown]
  - Hypertension [Unknown]
  - Dyslipidaemia [Unknown]
  - Sleep apnoea syndrome [Unknown]
  - Depression [Unknown]
  - Insomnia [Unknown]
  - Osteoarthritis [Unknown]
  - Vitamin D deficiency [Unknown]
  - Trigger finger [Unknown]
  - Dyspnoea [Unknown]
  - Pain in extremity [Unknown]
  - Emphysema [Unknown]
  - Constipation [Unknown]
  - Hypoglycaemia [Unknown]
  - Sensation of foreign body [Unknown]
  - Muscle spasms [Unknown]
  - Neoplasm skin [Unknown]
  - Arthralgia [Unknown]
  - Vitamin B12 deficiency [Unknown]
  - Carpal tunnel syndrome [Unknown]
  - Fatigue [Unknown]
  - Overweight [Unknown]
  - Nausea [Unknown]
  - Liver function test increased [Unknown]
  - Gastrooesophageal reflux disease [Unknown]
  - Synovial cyst [Unknown]
  - Body mass index increased [Unknown]

NARRATIVE: CASE EVENT DATE: 20210101
